FAERS Safety Report 9056843 (Version 1)
Quarter: 2013Q1

REPORT INFORMATION
  Report Type: Spontaneous
  Country: US (occurrence: US)
  Receive Date: 20130201
  Receipt Date: 20130201
  Transmission Date: 20140127
  Serious: Yes (Hospitalization)
  Sender: FDA-Public Use
  Company Number: US-GLAXOSMITHKLINE-A1009947A

PATIENT
  Age: 55 Year
  Sex: Female

DRUGS (10)
  1. ADVAIR [Suspect]
     Indication: CHRONIC OBSTRUCTIVE PULMONARY DISEASE
     Dosage: 1PUFF TWICE PER DAY
     Route: 055
     Dates: start: 2001
  2. SINGULAIR [Concomitant]
  3. FLU VAX [Concomitant]
  4. THEOPHYLLINE [Concomitant]
  5. SPIRIVA [Concomitant]
  6. ALBUTEROL NEBULIZER [Concomitant]
  7. VENTOLIN HFA [Concomitant]
  8. ANTIBIOTICS [Concomitant]
     Route: 042
  9. STEROID [Concomitant]
  10. SURGERY [Concomitant]

REACTIONS (6)
  - Lung infection [Recovered/Resolved with Sequelae]
  - Pseudomonas infection [Recovered/Resolved with Sequelae]
  - Rotator cuff syndrome [Unknown]
  - Malaise [Recovered/Resolved with Sequelae]
  - Malaise [Recovered/Resolved with Sequelae]
  - Feeling drunk [Recovered/Resolved with Sequelae]
